FAERS Safety Report 9177192 (Version 1)
Quarter: 2013Q1

REPORT INFORMATION
  Report Type: Spontaneous
  Country: US (occurrence: None)
  Receive Date: 20130320
  Receipt Date: 20130320
  Transmission Date: 20140127
  Serious: Yes (Hospitalization)
  Sender: FDA-Public Use
  Company Number: None

PATIENT
  Sex: Female
  Weight: 81 kg

DRUGS (3)
  1. IFOSFAMIDE [Suspect]
  2. PACLITAXEL (TAXOL) [Suspect]
  3. PEGFILGRASTIM (NEULASTA) [Suspect]

REACTIONS (14)
  - Small intestinal obstruction [None]
  - Platelet count increased [None]
  - Hypertension [None]
  - Hypoxia [None]
  - Pneumonia aspiration [None]
  - Metastases to liver [None]
  - Metastases to gallbladder [None]
  - Metastases to pelvis [None]
  - Hydronephrosis [None]
  - Metastases to kidney [None]
  - Mental status changes [None]
  - Fall [None]
  - Haemoglobin decreased [None]
  - General physical health deterioration [None]
